FAERS Safety Report 24823896 (Version 1)
Quarter: 2025Q1

REPORT INFORMATION
  Report Type: Spontaneous
  Country: JP (occurrence: JP)
  Receive Date: 20250109
  Receipt Date: 20250109
  Transmission Date: 20250409
  Serious: No
  Sender: ALKEM
  Company Number: JP-ALKEM LABORATORIES LIMITED-JP-ALKEM-2024-11716

PATIENT
  Age: 86 Year
  Sex: Female
  Weight: 40.5 kg

DRUGS (2)
  1. DEFERASIROX [Suspect]
     Active Substance: DEFERASIROX
     Indication: Iron overload
     Dosage: 625 MILLIGRAM, QD (DISPERSIBLE TABLETS)
     Route: 065
  2. DEFERASIROX [Suspect]
     Active Substance: DEFERASIROX
     Dosage: 450 MILLIGRAM, QD (GRANULES )
     Route: 065

REACTIONS (1)
  - Treatment noncompliance [Unknown]
